FAERS Safety Report 6123637-0 (Version None)
Quarter: 2009Q1

REPORT INFORMATION
  Report Type: 
  Country: None (occurrence: None)
  Receive Date: 20090319
  Receipt Date: 20090311
  Transmission Date: 20090719
  Serious: Yes (Hospitalization)
  Sender: FDA-Public Use
  Company Number: DE-JNJFOC-20090302771

PATIENT
  Age: 54 Year
  Sex: Male

DRUGS (16)
  1. HALDOL [Suspect]
     Indication: DRUG USE FOR UNKNOWN INDICATION
     Route: 048
  2. ERGENYL [Interacting]
     Route: 048
  3. ERGENYL [Interacting]
     Route: 048
  4. ERGENYL [Interacting]
     Route: 048
  5. ERGENYL [Interacting]
     Route: 048
  6. ERGENYL [Interacting]
     Route: 048
  7. ERGENYL [Interacting]
     Route: 048
  8. ERGENYL [Interacting]
     Indication: DRUG USE FOR UNKNOWN INDICATION
     Route: 048
  9. TAVOR [Interacting]
     Route: 048
  10. TAVOR [Interacting]
     Route: 048
  11. TAVOR [Interacting]
     Route: 048
  12. TAVOR [Interacting]
     Route: 048
  13. TAVOR [Interacting]
     Route: 048
  14. TAVOR [Interacting]
     Indication: DRUG USE FOR UNKNOWN INDICATION
     Route: 048
  15. BISOHEXAL [Concomitant]
     Route: 048
  16. ATACAND [Concomitant]
     Route: 048

REACTIONS (2)
  - DRUG INTERACTION [None]
  - ENCEPHALOPATHY [None]
